FAERS Safety Report 14391648 (Version 1)
Quarter: 2018Q1

REPORT INFORMATION
  Report Type: Spontaneous
  Country: US (occurrence: US)
  Receive Date: 20180116
  Receipt Date: 20180116
  Transmission Date: 20180509
  Serious: Yes (Hospitalization, Other)
  Sender: FDA-Public Use
  Company Number: PHEH2018US000930

PATIENT
  Age: 6 Year
  Sex: Male

DRUGS (37)
  1. PEG/L-ASPARAGINASE [Suspect]
     Active Substance: PEGASPARGASE
     Dosage: UNK
     Route: 065
     Dates: start: 20170118
  2. VINCRISTINE [Suspect]
     Active Substance: VINCRISTINE
     Dosage: UNK
     Route: 065
     Dates: start: 20170602
  3. DAUNORUBICIN [Suspect]
     Active Substance: DAUNORUBICIN
     Indication: T-CELL TYPE ACUTE LEUKAEMIA
     Dosage: UNK
     Route: 065
     Dates: start: 20161211
  4. VINCRISTINE [Suspect]
     Active Substance: VINCRISTINE
     Indication: T-CELL TYPE ACUTE LEUKAEMIA
     Dosage: UNK
     Route: 065
     Dates: start: 20161211
  5. CYTARABINE. [Suspect]
     Active Substance: CYTARABINE
     Indication: T-CELL TYPE ACUTE LEUKAEMIA
     Dosage: UNK
     Route: 065
     Dates: start: 20170118
  6. CYTARABINE. [Suspect]
     Active Substance: CYTARABINE
     Dosage: UNK
     Route: 065
     Dates: start: 20170602
  7. CARFILZOMIB [Suspect]
     Active Substance: CARFILZOMIB
     Dosage: UNK
     Route: 065
     Dates: start: 20171028
  8. METHOTREXATE SODIUM. [Suspect]
     Active Substance: METHOTREXATE SODIUM
     Dosage: UNK (HIGH DOSE)
     Route: 037
     Dates: start: 20170403
  9. DEXAMETHASONE. [Suspect]
     Active Substance: DEXAMETHASONE
     Dosage: UNK
     Route: 065
     Dates: start: 20171028
  10. PEG/L-ASPARAGINASE [Suspect]
     Active Substance: PEGASPARGASE
     Indication: T-CELL TYPE ACUTE LEUKAEMIA
     Dosage: UNK
     Route: 065
     Dates: start: 20161211
  11. PEG/L-ASPARAGINASE [Suspect]
     Active Substance: PEGASPARGASE
     Dosage: UNK
     Route: 065
     Dates: start: 20170602
  12. PEG/L-ASPARAGINASE [Suspect]
     Active Substance: PEGASPARGASE
     Dosage: UNK
     Route: 065
     Dates: start: 20171028
  13. VINCRISTINE [Suspect]
     Active Substance: VINCRISTINE
     Dosage: UNK
     Route: 065
     Dates: start: 20170118
  14. ETOPOSIDE. [Suspect]
     Active Substance: ETOPOSIDE
     Indication: T-CELL TYPE ACUTE LEUKAEMIA
     Dosage: UNK
     Route: 065
     Dates: start: 201712
  15. ETOPOSIDE. [Suspect]
     Active Substance: ETOPOSIDE
     Dosage: UNK
     Route: 065
     Dates: start: 20171204
  16. METHOTREXATE SODIUM. [Suspect]
     Active Substance: METHOTREXATE SODIUM
     Dosage: UNK
     Route: 037
     Dates: start: 20170118
  17. METHOTREXATE SODIUM. [Suspect]
     Active Substance: METHOTREXATE SODIUM
     Dosage: UNK (CAPEZZI)
     Route: 037
     Dates: start: 20170825
  18. VINCRISTINE [Suspect]
     Active Substance: VINCRISTINE
     Dosage: UNK
     Route: 065
     Dates: start: 20170403
  19. THIOGUANINE [Suspect]
     Active Substance: THIOGUANINE
     Indication: T-CELL TYPE ACUTE LEUKAEMIA
     Dosage: UNK
     Route: 065
     Dates: start: 20170602
  20. CARFILZOMIB [Suspect]
     Active Substance: CARFILZOMIB
     Indication: T-CELL TYPE ACUTE LEUKAEMIA
     Dosage: UNK
     Route: 065
  21. METHOTREXATE SODIUM. [Suspect]
     Active Substance: METHOTREXATE SODIUM
     Dosage: UNK
     Route: 037
     Dates: start: 20170602
  22. DEXAMETHASONE. [Suspect]
     Active Substance: DEXAMETHASONE
     Dosage: UNK
     Route: 065
     Dates: start: 20170602
  23. CYCLOPHOSPHAMIDE. [Suspect]
     Active Substance: CYCLOPHOSPHAMIDE
     Dosage: UNK
     Route: 065
     Dates: start: 201712
  24. MERCAPTOPURINE. [Suspect]
     Active Substance: MERCAPTOPURINE
     Indication: T-CELL TYPE ACUTE LEUKAEMIA
     Dosage: UNK
     Route: 065
     Dates: start: 20170118
  25. VINCRISTINE [Suspect]
     Active Substance: VINCRISTINE
     Dosage: UNK
     Route: 065
     Dates: start: 20171028
  26. DAUNORUBICIN [Suspect]
     Active Substance: DAUNORUBICIN
     Dosage: UNK
     Route: 065
     Dates: start: 20171028
  27. NELARABINE [Suspect]
     Active Substance: NELARABINE
     Indication: T-CELL TYPE ACUTE LEUKAEMIA
     Dosage: UNK
     Route: 065
     Dates: start: 201712
  28. CYCLOPHOSPHAMIDE. [Suspect]
     Active Substance: CYCLOPHOSPHAMIDE
     Dosage: UNK
     Route: 065
     Dates: start: 20170602
  29. CYCLOPHOSPHAMIDE. [Suspect]
     Active Substance: CYCLOPHOSPHAMIDE
     Dosage: UNK
     Route: 065
     Dates: start: 201712
  30. DOXORUBICIN [Suspect]
     Active Substance: DOXORUBICIN
     Indication: T-CELL TYPE ACUTE LEUKAEMIA
     Dosage: UNK
     Route: 065
     Dates: start: 20170602
  31. NELARABINE [Suspect]
     Active Substance: NELARABINE
     Dosage: UNK
     Route: 065
     Dates: start: 20171204
  32. METHOTREXATE SODIUM. [Suspect]
     Active Substance: METHOTREXATE SODIUM
     Indication: T-CELL TYPE ACUTE LEUKAEMIA
     Dosage: UNK
     Route: 037
     Dates: start: 20161211
  33. DEXAMETHASONE. [Suspect]
     Active Substance: DEXAMETHASONE
     Indication: T-CELL TYPE ACUTE LEUKAEMIA
     Dosage: UNK
     Route: 065
     Dates: start: 20161211
  34. PEG/L-ASPARAGINASE [Suspect]
     Active Substance: PEGASPARGASE
     Dosage: UNK
     Route: 065
     Dates: start: 20170825
  35. VINCRISTINE [Suspect]
     Active Substance: VINCRISTINE
     Dosage: UNK
     Route: 065
     Dates: start: 20170825
  36. CYCLOPHOSPHAMIDE. [Suspect]
     Active Substance: CYCLOPHOSPHAMIDE
     Indication: T-CELL TYPE ACUTE LEUKAEMIA
     Dosage: UNK
     Route: 065
     Dates: start: 20170108
  37. MERCAPTOPURINE. [Suspect]
     Active Substance: MERCAPTOPURINE
     Dosage: UNK
     Route: 065
     Dates: start: 20170403

REACTIONS (9)
  - Coagulopathy [Unknown]
  - Hypersensitivity [Recovered/Resolved]
  - Pyrexia [Unknown]
  - Cellulitis [Unknown]
  - Minimal residual disease [Unknown]
  - Neutropenia [Unknown]
  - Acute lymphocytic leukaemia recurrent [Unknown]
  - Pruritus [Recovered/Resolved]
  - Oropharyngeal pain [Recovered/Resolved]
